FAERS Safety Report 9778983 (Version 2)
Quarter: 2014Q1

REPORT INFORMATION
  Report Type: Spontaneous
  Country: US (occurrence: US)
  Receive Date: 20131223
  Receipt Date: 20140228
  Transmission Date: 20141002
  Serious: Yes (Other)
  Sender: FDA-Public Use
  Company Number: PHHY2013US146011

PATIENT
  Age: 89 Year
  Sex: Female

DRUGS (3)
  1. AMANTADINE [Suspect]
     Indication: INFLUENZA
     Dosage: 100 MG, BID
  2. DIPHENHYDRAMINE [Suspect]
     Dosage: 25 MG, AT BED TIME
  3. PREDNISONE [Concomitant]

REACTIONS (14)
  - Neurotoxicity [Unknown]
  - Psychotic disorder [Recovered/Resolved]
  - Delusion [Recovered/Resolved]
  - Speech disorder [Recovered/Resolved]
  - Disorientation [Recovered/Resolved]
  - Hallucination, visual [Recovered/Resolved]
  - Hallucination, auditory [Recovered/Resolved]
  - Elevated mood [Recovered/Resolved]
  - Psychiatric decompensation [Recovered/Resolved]
  - Loose associations [Recovered/Resolved]
  - Delirium [Recovered/Resolved]
  - Rebound effect [Unknown]
  - Mania [Recovered/Resolved]
  - Agitation [Recovered/Resolved]
